FAERS Safety Report 6925380-4 (Version None)
Quarter: 2010Q3

REPORT INFORMATION
  Report Type: 
  Country: None (occurrence: None)
  Receive Date: 20100816
  Receipt Date: 20100805
  Transmission Date: 20110219
  Serious: Yes (Hospitalization, Other)
  Sender: FDA-Public Use
  Company Number: FR-CELGENEUS-056-20785-10080471

PATIENT
  Sex: Male
  Weight: 68 kg

DRUGS (7)
  1. THALIDOMIDE [Suspect]
     Indication: MULTIPLE MYELOMA
     Route: 048
     Dates: start: 20100625
  2. VELCADE [Suspect]
     Indication: MULTIPLE MYELOMA
     Route: 051
     Dates: start: 20100625
  3. ASPEGIC 1000 [Suspect]
     Indication: MULTIPLE MYELOMA
     Route: 048
     Dates: start: 20100625
  4. ORACILLIN [Suspect]
     Indication: INFECTION PROPHYLAXIS
     Route: 048
     Dates: start: 20100625
  5. BACTRIM DS [Suspect]
     Indication: INFECTION PROPHYLAXIS
     Route: 048
     Dates: start: 20100625
  6. ZOMETA [Suspect]
     Indication: MULTIPLE MYELOMA
     Route: 051
     Dates: start: 20100625
  7. ZELITREX [Suspect]
     Indication: INFECTION PROPHYLAXIS
     Route: 048
     Dates: start: 20100625

REACTIONS (1)
  - EPIDERMOLYSIS BULLOSA [None]
